FAERS Safety Report 5358549-3 (Version None)
Quarter: 2007Q2

REPORT INFORMATION
  Report Type: 
  Country: None (occurrence: None)
  Receive Date: 20070613
  Receipt Date: 20070613
  Transmission Date: 20071010
  Serious: Yes (Death)
  Sender: FDA-Public Use
  Company Number: None

PATIENT
  Sex: Male
  Weight: 97.0698 kg

DRUGS (3)
  1. DENILEUKIN DIFTITOX SERAGEN [Suspect]
     Indication: MYCOSIS FUNGOIDES
     Dates: start: 20070417, end: 20070419
  2. MULTI-VITAMIN [Concomitant]
  3. NAPROXEN [Concomitant]

REACTIONS (5)
  - BLOOD ALBUMIN DECREASED [None]
  - CAPILLARY LEAK SYNDROME [None]
  - HAEMOGLOBIN INCREASED [None]
  - ORTHOSTATIC HYPOTENSION [None]
  - SYNCOPE VASOVAGAL [None]
